FAERS Safety Report 8410017-8 (Version None)
Quarter: 2012Q2

REPORT INFORMATION
  Report Type: 
  Country: None (occurrence: None)
  Receive Date: 20120529
  Receipt Date: 20050104
  Transmission Date: 20120825
  Serious: Yes (Hospitalization)
  Sender: FDA-Public Use
  Company Number: 15691-USA-05-0025

PATIENT
  Age: 63 Year
  Sex: Female

DRUGS (7)
  1. LANOXIN [Concomitant]
  2. COFREG (CARVEDILOL) [Concomitant]
  3. TOLVAPTAN (TOLVAPTAN(V4.1)) 30MG [Suspect]
     Indication: CARDIAC FAILURE CONGESTIVE
     Dosage: 30 MG, QD, ORAL
     Route: 048
     Dates: start: 20040625
  4. CAPOTEN [Concomitant]
  5. ACTOS (CAN) (PIOGLITAZONE HYDROCHLORIDE) [Concomitant]
  6. COUMADIN [Concomitant]
  7. LASIX [Concomitant]

REACTIONS (3)
  - ATRIAL FIBRILLATION [None]
  - CARDIAC FAILURE CONGESTIVE [None]
  - CONDITION AGGRAVATED [None]
